FAERS Safety Report 8971948 (Version 2)
Quarter: 2012Q4

REPORT INFORMATION
  Report Type: 
  Country: CH (occurrence: CH)
  Receive Date: 20121218
  Receipt Date: 20121220
  Transmission Date: 20130627
  Serious: Yes (Disabling)
  Sender: FDA-Public Use
  Company Number: PHHY2012CH115794

PATIENT
  Age: 85 Year
  Sex: Female
  Weight: 46 kg

DRUGS (5)
  1. METFIN [Suspect]
     Dosage: 1000 mg per day
     Route: 048
  2. UVAMIN [Suspect]
     Indication: BLADDER DISORDER
     Dosage: 100 mg per day
     Route: 048
     Dates: end: 20111125
  3. VISKALDIX [Suspect]
     Dosage: 1 DF, UNK
     Route: 048
     Dates: end: 201204
  4. PRAVALOTIN [Suspect]
     Dosage: 40 mg per day
     Route: 048
  5. CALPEROS D3 [Suspect]
     Dosage: 1 DF, UNK
     Route: 048

REACTIONS (7)
  - Idiopathic pulmonary fibrosis [Unknown]
  - Cough [Recovering/Resolving]
  - Dyspnoea [Not Recovered/Not Resolved]
  - Crepitations [Recovering/Resolving]
  - Weight decreased [Not Recovered/Not Resolved]
  - Hepatic enzyme increased [Recovered/Resolved]
  - Decreased appetite [Not Recovered/Not Resolved]
